FAERS Safety Report 7737277-0 (Version None)
Quarter: 2011Q3

REPORT INFORMATION
  Report Type: 
  Country: None (occurrence: None)
  Receive Date: 20110902
  Receipt Date: 20110818
  Transmission Date: 20111222
  Serious: Yes (Hospitalization)
  Sender: FDA-Public Use
  Company Number: THQ2011A05052

PATIENT
  Sex: Female

DRUGS (8)
  1. GLIMEPIRIDE [Concomitant]
  2. THIOGAMMA (THIOCTIC ACID) [Concomitant]
  3. AMLOIPN (AMLODIPINE BESILATE) [Concomitant]
  4. ADEXOR (TRIMETAZIDINE HYDROCHLORIDE) [Concomitant]
  5. ACTOS [Suspect]
     Indication: DIABETES MELLITUS
     Dosage: 30 MG (1 D) PER ORAL
     Route: 048
     Dates: start: 20101125, end: 20110816
  6. HEXAL (HEXACHLOROPHENE) [Concomitant]
  7. AMLODIPINE [Concomitant]
  8. IRBESARTAN AND HYDROCHLOROTHIAZIDE [Concomitant]

REACTIONS (2)
  - BLADDER NEOPLASM [None]
  - HAEMATURIA [None]
